FAERS Safety Report 7481755-9 (Version None)
Quarter: 2011Q2

REPORT INFORMATION
  Report Type: 
  Country: None (occurrence: None)
  Receive Date: 20110516
  Receipt Date: 20110506
  Transmission Date: 20111010
  Serious: Yes (Hospitalization)
  Sender: FDA-Public Use
  Company Number: B0717541A

PATIENT
  Sex: Female

DRUGS (2)
  1. PAROXETINE HCL [Suspect]
     Indication: PRODUCT USED FOR UNKNOWN INDICATION
     Route: 048
     Dates: start: 20110303, end: 20110311
  2. ABILIFY [Suspect]
     Indication: PRODUCT USED FOR UNKNOWN INDICATION
     Dosage: 5MG PER DAY
     Route: 048
     Dates: start: 20110302, end: 20110311

REACTIONS (6)
  - MYDRIASIS [None]
  - EXOPHTHALMOS [None]
  - CONDITION AGGRAVATED [None]
  - EYE MOVEMENT DISORDER [None]
  - CEREBRAL ATROPHY [None]
  - NERVOUS SYSTEM DISORDER [None]
